FAERS Safety Report 9648976 (Version 1)
Quarter: 2013Q4

REPORT INFORMATION
  Report Type: Report from Study
  Country: KR (occurrence: KR)
  Receive Date: 20131028
  Receipt Date: 20131028
  Transmission Date: 20140711
  Serious: Yes (Death, Hospitalization)
  Sender: FDA-Public Use
  Company Number: KR-SA-2013SA106221

PATIENT
  Age: 79 Year
  Sex: Female
  Weight: 44 kg

DRUGS (2)
  1. LANTUS [Suspect]
     Indication: DIABETES MELLITUS
     Dosage: DOSE:10 UNIT(S)
     Route: 058
     Dates: start: 2013, end: 2013
  2. LANTUS [Suspect]
     Indication: DIABETES MELLITUS
     Dosage: DOSE:11 UNIT(S)
     Route: 058
     Dates: start: 201304

REACTIONS (2)
  - Liver disorder [Fatal]
  - Hyperglycaemia [Fatal]
